FAERS Safety Report 8526000-8 (Version None)
Quarter: 2012Q3

REPORT INFORMATION
  Report Type: 
  Country: None (occurrence: None)
  Receive Date: 20120720
  Receipt Date: 20120710
  Transmission Date: 20120928
  Serious: Yes (Hospitalization, Other)
  Sender: FDA-Public Use
  Company Number: PHHO2011IN11841

PATIENT
  Sex: Male

DRUGS (18)
  1. HUMAN MIXTARD 30/70 [Concomitant]
     Indication: DIABETES MELLITUS
     Dosage: 20-0-14 IU
     Route: 058
     Dates: start: 20080101
  2. ARIPIPRAZOLE [Concomitant]
     Indication: SCHIZOPHRENIA
     Dosage: 10 MG, QD
     Dates: start: 20110727
  3. IVABRADINE [Concomitant]
     Indication: CARDIOVASCULAR DISORDER
     Dosage: UNK
     Dates: start: 20100702
  4. CLONIDINE [Concomitant]
  5. LOSARTAN POTASSIUM [Concomitant]
     Indication: HYPERTENSION
     Dosage: UNK
     Dates: start: 20080101
  6. ACETYLSALICYLIC ACID SRT [Suspect]
  7. CLOPIDOGREL [Suspect]
     Dosage: 75 MG, QD
     Dates: start: 20080101
  8. HUMAN ACTRAPID [Concomitant]
     Indication: DIABETES MELLITUS
     Dosage: 0-20-0 U S/E
     Dates: start: 20091022
  9. CLOPITAB-A [Concomitant]
     Indication: MYOCARDIAL ISCHAEMIA
     Dosage: 75 MG, QD
     Route: 048
  10. HUMAN ACTRAPID [Concomitant]
     Dosage: UNK
     Dates: start: 20110730
  11. METOPROLOL SUCCINATE [Concomitant]
     Dosage: 25 MG, QD
     Dates: start: 20110731
  12. BLINDED ALISKIREN [Suspect]
     Indication: CARDIOVASCULAR DISORDER
     Dosage: CODE NOT BROKEN
     Route: 048
     Dates: start: 20110315, end: 20110719
  13. BLINDED NO TREATMENT RECEIVED [Suspect]
     Indication: CARDIOVASCULAR DISORDER
     Dosage: CODE NOT BROKEN
     Route: 048
     Dates: start: 20110315, end: 20110719
  14. ATORVASTATIN [Concomitant]
     Indication: DYSLIPIDAEMIA
     Dosage: 10 MG, QD
     Dates: start: 20110720
  15. PLACEBO [Suspect]
     Indication: CARDIOVASCULAR DISORDER
     Dosage: CODE NOT BROKEN
     Route: 048
     Dates: start: 20110315, end: 20110719
  16. HUMAN MIXTARD 30/70 [Concomitant]
     Dosage: 20-0-16 U S/E
     Dates: start: 20110730
  17. METOPROLOL SUCCINATE [Concomitant]
     Indication: CARDIOVASCULAR DISORDER
     Dosage: UNK
     Dates: start: 20080101
  18. IVABRADINE [Concomitant]
     Indication: ANGINA PECTORIS
     Dosage: 5 MG, 1/3-0-0
     Dates: start: 20110728

REACTIONS (5)
  - SUBDURAL HAEMORRHAGE [None]
  - SPINAL CORD INJURY CERVICAL [None]
  - URINARY TRACT INFECTION [None]
  - RENAL FAILURE CHRONIC [None]
  - CONCOMITANT DISEASE PROGRESSION [None]
